FAERS Safety Report 22933013 (Version 2)
Quarter: 2024Q3

REPORT INFORMATION
  Report Type: Spontaneous
  Country: FR (occurrence: FR)
  Receive Date: 20230912
  Receipt Date: 20240921
  Transmission Date: 20241016
  Serious: Yes (Hospitalization, Other)
  Sender: AUROBINDO
  Company Number: FR-AFSSAPS-AN2023001128

PATIENT
  Age: 39 Year
  Sex: Female

DRUGS (6)
  1. EPHEDRINE [Suspect]
     Active Substance: EPHEDRINE
     Indication: Hypertension
     Dosage: 12 MILLIGRAM TOTAL
     Route: 042
     Dates: start: 20230818, end: 20230818
  2. BUPIVACAINE [Suspect]
     Active Substance: BUPIVACAINE
     Indication: Spinal anaesthesia
     Dosage: UNK
     Route: 008
     Dates: start: 20230818, end: 20230818
  3. CEFAZOLIN SODIUM [Suspect]
     Active Substance: CEFAZOLIN SODIUM
     Indication: Antibiotic prophylaxis
     Dosage: UNK
     Route: 042
     Dates: start: 20230818, end: 20230818
  4. MORPHINE [Suspect]
     Active Substance: MORPHINE
     Indication: Spinal anaesthesia
     Dosage: UNK
     Route: 008
     Dates: start: 20230818, end: 20230818
  5. SUFENTANIL [Suspect]
     Active Substance: SUFENTANIL
     Indication: Spinal anaesthesia
     Dosage: UNK
     Route: 008
     Dates: start: 20230818, end: 20230818
  6. XYLOCAINE [Suspect]
     Active Substance: LIDOCAINE HYDROCHLORIDE
     Indication: Pain
     Dosage: 2 MILLILITER TOTAL
     Route: 065
     Dates: start: 20230818, end: 20230818

REACTIONS (3)
  - Anaphylactic shock [Recovered/Resolved]
  - Shock [Recovered/Resolved]
  - Myoclonus [Recovered/Resolved]

NARRATIVE: CASE EVENT DATE: 20230818
